FAERS Safety Report 21977876 (Version 1)
Quarter: 2023Q1

REPORT INFORMATION
  Report Type: Spontaneous
  Country: US (occurrence: None)
  Receive Date: 20230209
  Receipt Date: 20230209
  Transmission Date: 20230417
  Serious: No
  Sender: FDA-Public Use
  Company Number: None

PATIENT
  Age: 31 Month
  Sex: Female
  Weight: 15.2 kg

DRUGS (1)
  1. AMOXICILLIN [Suspect]
     Active Substance: AMOXICILLIN
     Indication: Otitis media acute
     Dosage: 8.6 ML TWICE A DAY ORAL
     Route: 048

REACTIONS (3)
  - Serum sickness-like reaction [None]
  - Treatment failure [None]
  - Product availability issue [None]

NARRATIVE: CASE EVENT DATE: 20230206
